FAERS Safety Report 6216250-8 (Version None)
Quarter: 2009Q2

REPORT INFORMATION
  Report Type: 
  Country: None (occurrence: None)
  Receive Date: 20090605
  Receipt Date: 20090525
  Transmission Date: 20091009
  Serious: Yes (Death)
  Sender: FDA-Public Use
  Company Number: B0543826A

PATIENT
  Sex: Male

DRUGS (11)
  1. TRIZIVIR [Suspect]
     Indication: HIV INFECTION
     Route: 048
     Dates: start: 20040609, end: 20060829
  2. RETROVIR [Suspect]
     Indication: HIV INFECTION
     Route: 065
     Dates: start: 19930512, end: 19980610
  3. EPIVIR [Suspect]
     Indication: HIV INFECTION
     Route: 065
     Dates: start: 19960903, end: 19980610
  4. COMBIVIR [Suspect]
     Indication: HIV INFECTION
     Route: 048
     Dates: start: 19980610, end: 20040609
  5. VIREAD [Suspect]
     Indication: HIV INFECTION
     Route: 048
     Dates: start: 20060220, end: 20060819
  6. KALETRA [Suspect]
     Indication: HIV INFECTION
     Route: 065
     Dates: start: 20040609, end: 20060220
  7. INVIRASE [Suspect]
     Indication: HIV INFECTION
     Route: 065
     Dates: start: 20040609, end: 20060220
  8. HIVID [Suspect]
     Indication: HIV INFECTION
     Route: 065
     Dates: start: 19940721, end: 19960902
  9. CRIXIVAN [Suspect]
     Indication: HIV INFECTION
     Route: 048
     Dates: start: 19970302, end: 20040609
  10. BACTRIM [Concomitant]
     Indication: HIV INFECTION
     Route: 048
  11. NORVIR [Concomitant]
     Indication: HIV INFECTION
     Route: 065
     Dates: start: 19991110, end: 20020410

REACTIONS (4)
  - CARDIAC FAILURE [None]
  - DEATH [None]
  - DRUG INTERACTION [None]
  - VIROLOGIC FAILURE [None]
